FAERS Safety Report 19355262 (Version 1)
Quarter: 2021Q2

REPORT INFORMATION
  Report Type: Spontaneous
  Country: US (occurrence: US)
  Receive Date: 20210601
  Receipt Date: 20210601
  Transmission Date: 20210717
  Serious: No
  Sender: FDA-Public Use
  Company Number: US-SA-2021SA178180

PATIENT
  Age: 22 Year
  Sex: Male

DRUGS (3)
  1. DUPIXENT [Suspect]
     Active Substance: DUPILUMAB
     Indication: DERMATITIS ATOPIC
  2. DUPIXENT [Suspect]
     Active Substance: DUPILUMAB
     Indication: ASTHMA
     Dosage: 300 MG, QOW
     Route: 058
     Dates: start: 20201216
  3. DUPIXENT [Suspect]
     Active Substance: DUPILUMAB
     Indication: SEASONAL ALLERGY

REACTIONS (7)
  - Eczema [Unknown]
  - Skin fissures [Unknown]
  - Skin exfoliation [Unknown]
  - Skin haemorrhage [Unknown]
  - Pruritus [Unknown]
  - Product use in unapproved indication [Unknown]
  - Dry skin [Unknown]

NARRATIVE: CASE EVENT DATE: 20201216
